FAERS Safety Report 8758317 (Version 1)
Quarter: 2012Q4

REPORT INFORMATION
  Report Type: Spontaneous
  Country: US (occurrence: None)
  Receive Date: 20120828
  Receipt Date: 20120828
  Transmission Date: 20130627
  Serious: Yes (Life-Threatening, Hospitalization)
  Sender: FDA-Public Use
  Company Number: None

PATIENT
  Age: 27 Year
  Sex: Male
  Weight: 82.3 kg

DRUGS (4)
  1. RISPERDAL [Suspect]
     Dosage: 210mg missing from bubble pack not sure possible overdose
     Dates: start: 20120819, end: 20120820
  2. RISPERDAL [Suspect]
     Dosage: 210mg missing from bubble pack not sure possible overdose
     Dates: start: 20120819, end: 20120820
  3. GEODON [Suspect]
  4. SEROQUEL [Concomitant]

REACTIONS (7)
  - Catatonia [None]
  - Heart rate increased [None]
  - Hyperhidrosis [None]
  - Delirium [None]
  - Tremor [None]
  - Unresponsive to stimuli [None]
  - Neuroleptic malignant syndrome [None]
